FAERS Safety Report 4492793-2 (Version None)
Quarter: 2004Q4

REPORT INFORMATION
  Report Type: 
  Country: None (occurrence: None)
  Receive Date: 20041029
  Receipt Date: 20041019
  Transmission Date: 20050328
  Serious: Yes (Life-Threatening, Hospitalization)
  Sender: FDA-Public Use
  Company Number: 2004240040DE

PATIENT
  Age: 65 Year
  Sex: Female

DRUGS (2)
  1. CALAN [Suspect]
     Dosage: 1.4 G
  2. QUINIDINE SULFATE [Suspect]
     Dosage: 4.5 G

REACTIONS (6)
  - BRADYCARDIA [None]
  - COMA [None]
  - DRUG INEFFECTIVE [None]
  - HYPOTENSION [None]
  - MULTIPLE DRUG OVERDOSE INTENTIONAL [None]
  - PNEUMONIA [None]
